FAERS Safety Report 5815178-2 (Version None)
Quarter: 2008Q3

REPORT INFORMATION
  Report Type: 
  Country: None (occurrence: None)
  Receive Date: 20080718
  Receipt Date: 20080710
  Transmission Date: 20090109
  Serious: Yes (Hospitalization)
  Sender: FDA-Public Use
  Company Number: DE-ROCHE-575661

PATIENT
  Sex: Female
  Weight: 54 kg

DRUGS (9)
  1. METHOXY POLYETHYLENE GLYCOL-EPOETIN BETA [Suspect]
     Route: 065
     Dates: start: 20080604
  2. METHOXY POLYETHYLENE GLYCOL-EPOETIN BETA [Suspect]
     Route: 065
     Dates: start: 20080709
  3. DILTIAZAM [Concomitant]
     Dosage: DILTIZAM 120.TDD REPORTED AS 2X1
  4. NEPRESOL [Concomitant]
     Dosage: TDD REPORTED AS 3X1
  5. RONIACOL [Concomitant]
     Dosage: REPORTED AS RONCHIOL 0.4 TDD REPORTED AS 2X1
  6. DOCITON 40 [Concomitant]
     Dosage: TDD REPORTED AS 1X1
  7. FUROSEMIDE [Concomitant]
     Dosage: FUROSEMIDE 40 TDD REPORTED AS 3X1
  8. NEPHROTRANS [Concomitant]
     Dosage: TTD REPORTED AS 1X
  9. ENALAPRIL MALEATE [Concomitant]
     Dosage: ENALAPRIL 20. TTD 2X1/2

REACTIONS (1)
  - SHUNT OCCLUSION [None]
